FAERS Safety Report 6173863-X (Version None)
Quarter: 2009Q2

REPORT INFORMATION
  Report Type: 
  Country: None (occurrence: None)
  Receive Date: 20090430
  Receipt Date: 20090420
  Transmission Date: 20091009
  Serious: Yes (Hospitalization, Other)
  Sender: FDA-Public Use
  Company Number: IE-ELI_LILLY_AND_COMPANY-IE200903003819

PATIENT
  Sex: Female
  Weight: 68.5 kg

DRUGS (8)
  1. ZYPREXA [Suspect]
     Indication: SCHIZOPHRENIA, PARANOID TYPE
     Dosage: 5 MG, UNK
     Route: 048
     Dates: start: 20010101, end: 20080101
  2. ELTROXIN [Concomitant]
     Dosage: 75 MG, DAILY (1/D)
     Route: 048
  3. GLUCOPHAGE [Concomitant]
     Dosage: 500 UNK, 2/D
  4. ATIVAN [Concomitant]
     Dosage: 0.5 UNK, UNK
  5. ASPIRIN [Concomitant]
     Dosage: 75 MG, UNK
     Route: 048
  6. NEXIUM [Concomitant]
     Indication: CHRONIC OBSTRUCTIVE PULMONARY DISEASE
     Dosage: 40 MG, UNK
     Route: 048
  7. RAMIPRIL [Concomitant]
     Indication: CARDIOVASCULAR DISORDER
     Dosage: 2.5 MG, UNK
     Route: 048
  8. CARDICOR [Concomitant]
     Indication: CARDIOVASCULAR DISORDER
     Dosage: 2.5 MG, UNK

REACTIONS (2)
  - HYPERPYREXIA [None]
  - PELVIC INFECTION [None]
